FAERS Safety Report 23774963 (Version 1)
Quarter: 2024Q2

REPORT INFORMATION
  Report Type: Spontaneous
  Country: CH (occurrence: CH)
  Receive Date: 20240423
  Receipt Date: 20240423
  Transmission Date: 20240716
  Serious: Yes (Hospitalization)
  Sender: FDA-Public Use
  Company Number: None

PATIENT
  Age: 15 Year
  Sex: Male
  Weight: 44 kg

DRUGS (2)
  1. EBASTINE [Suspect]
     Active Substance: EBASTINE
     Indication: Premedication
     Dosage: 5 MILLIGRAM, QD
     Route: 048
     Dates: start: 20240110, end: 20240125
  2. GRAZAX [Suspect]
     Active Substance: PHLEUM PRATENSE POLLEN
     Indication: Seasonal allergy
     Dosage: 1 DOSAGE FORM, QD
     Route: 048
     Dates: start: 20231222, end: 20240125

REACTIONS (1)
  - Confusional state [Recovered/Resolved]

NARRATIVE: CASE EVENT DATE: 20240124
